FAERS Safety Report 9862506 (Version 1)
Quarter: 2014Q1

REPORT INFORMATION
  Report Type: Spontaneous
  Country: AR (occurrence: AR)
  Receive Date: 20140203
  Receipt Date: 20140203
  Transmission Date: 20141002
  Serious: Yes (Death, Other)
  Sender: FDA-Public Use
  Company Number: PHHY2014AR009301

PATIENT
  Sex: 0

DRUGS (2)
  1. PREDNISONE [Suspect]
  2. ABIRATERONE [Suspect]
     Dates: start: 20120319

REACTIONS (2)
  - Disease progression [Fatal]
  - Thrombocytopenia [Unknown]
